FAERS Safety Report 5017962-4 (Version None)
Quarter: 2006Q2

REPORT INFORMATION
  Report Type: 
  Country: None (occurrence: None)
  Receive Date: 20060605
  Receipt Date: 20060519
  Transmission Date: 20061013
  Serious: Yes (Hospitalization)
  Sender: FDA-Public Use
  Company Number: FR-GLAXOSMITHKLINE-B0424844A

PATIENT
  Age: 61 Year
  Sex: Male

DRUGS (8)
  1. COMBIVIR [Suspect]
     Indication: HIV INFECTION
     Dosage: 2TAB PER DAY
     Route: 048
     Dates: start: 20060315, end: 20060101
  2. TELZIR [Concomitant]
     Indication: HIV INFECTION
     Dosage: 700MG TWICE PER DAY
     Route: 048
     Dates: start: 20060315
  3. NORVIR [Concomitant]
     Indication: HIV INFECTION
     Dosage: 100MG TWICE PER DAY
     Route: 048
     Dates: start: 20060315
  4. ADIAZINE 500 [Concomitant]
     Indication: CEREBRAL TOXOPLASMOSIS
     Route: 048
     Dates: start: 20060101
  5. MALOCIDE 50 [Concomitant]
     Indication: CEREBRAL TOXOPLASMOSIS
     Route: 048
     Dates: start: 20060101
  6. BACTRIM [Concomitant]
     Indication: CEREBRAL TOXOPLASMOSIS
     Dosage: 1UNIT PER DAY
     Route: 048
     Dates: start: 20060101
  7. AZITHROMYCINE [Concomitant]
     Indication: CEREBRAL TOXOPLASMOSIS
     Route: 048
     Dates: start: 20060101
  8. LEDERFOLINE [Concomitant]
     Dosage: 5MG PER DAY
     Route: 065
     Dates: start: 20060403

REACTIONS (3)
  - APLASIA PURE RED CELL [None]
  - PYREXIA [None]
  - SINUSITIS [None]
